FAERS Safety Report 18863590 (Version 3)
Quarter: 2021Q2

REPORT INFORMATION
  Report Type: Report from Study
  Country: CN (occurrence: CN)
  Receive Date: 20210208
  Receipt Date: 20210505
  Transmission Date: 20210717
  Serious: No
  Sender: FDA-Public Use
  Company Number: NVSC2021CN024603

PATIENT
  Age: 53 Year
  Sex: Male

DRUGS (7)
  1. OLANZAPINE. [Concomitant]
     Active Substance: OLANZAPINE
     Indication: PRODUCT USED FOR UNKNOWN INDICATION
     Dosage: 1 PILL/TIME 5G/DAY EVERY NIGHT
     Route: 048
     Dates: start: 201911
  2. CLONAZEPAM. [Concomitant]
     Active Substance: CLONAZEPAM
     Indication: PRODUCT USED FOR UNKNOWN INDICATION
     Dosage: 1 TABLET/TIME
     Route: 048
     Dates: start: 201911
  3. CLONAZEPAM. [Concomitant]
     Active Substance: CLONAZEPAM
     Dosage: HALF A TABLET/TIME
     Route: 048
     Dates: start: 202011
  4. ZYKADIA [Suspect]
     Active Substance: CERITINIB
     Dosage: 2 DF (A DAY)
     Route: 048
  5. ZYKADIA [Suspect]
     Active Substance: CERITINIB
     Dosage: 3 DF (A DAY)
     Route: 048
  6. ZYKADIA [Suspect]
     Active Substance: CERITINIB
     Indication: NON-SMALL CELL LUNG CANCER
     Dosage: 300 MG, QD
     Route: 048
     Dates: start: 20190604
  7. OLANZAPINE. [Concomitant]
     Active Substance: OLANZAPINE
     Dosage: HALF A PILL/TIME, 2.5G/DAY EVERY NIGHT
     Route: 048
     Dates: start: 202011

REACTIONS (2)
  - Retching [Recovered/Resolved]
  - Diarrhoea [Recovered/Resolved]

NARRATIVE: CASE EVENT DATE: 20190604
